FAERS Safety Report 4362823-7 (Version None)
Quarter: 2004Q2

REPORT INFORMATION
  Report Type: 
  Country: None (occurrence: None)
  Receive Date: 20040518
  Receipt Date: 20040506
  Transmission Date: 20050107
  Serious: Yes (Other)
  Sender: FDA-Public Use
  Company Number: US-JNJFOC-20040501806

PATIENT
  Sex: Female

DRUGS (1)
  1. DURAGESIC [Suspect]
     Dosage: 75 UG/HR, TRANSDERMAL
     Route: 062

REACTIONS (2)
  - LOSS OF CONSCIOUSNESS [None]
  - PHARMACEUTICAL PRODUCT COMPLAINT [None]
